FAERS Safety Report 12715391 (Version 4)
Quarter: 2018Q2

REPORT INFORMATION
  Report Type: Report from Study
  Country: US (occurrence: US)
  Receive Date: 20160906
  Receipt Date: 20180615
  Transmission Date: 20180711
  Serious: Yes (Other)
  Sender: FDA-Public Use
  Company Number: US-ROCHE-1825329

PATIENT
  Age: 6 Year
  Sex: Male
  Weight: 17.5 kg

DRUGS (1)
  1. NUTROPIN AQ [Suspect]
     Active Substance: SOMATROPIN
     Indication: BODY HEIGHT BELOW NORMAL
     Dosage: NUSPIN 10 MG PEN
     Route: 058
     Dates: start: 20160831

REACTIONS (5)
  - Gait disturbance [Unknown]
  - Injury associated with device [Unknown]
  - Underdose [Unknown]
  - Pain in extremity [Unknown]
  - Pain in extremity [Recovered/Resolved]

NARRATIVE: CASE EVENT DATE: 20160901
